FAERS Safety Report 4343640-0 (Version None)
Quarter: 2004Q2

REPORT INFORMATION
  Report Type: 
  Country: None (occurrence: None)
  Receive Date: 20040419
  Receipt Date: 20040406
  Transmission Date: 20050107
  Serious: Yes (Other)
  Sender: FDA-Public Use
  Company Number: 2004024093

PATIENT
  Sex: Female

DRUGS (3)
  1. ZYRTEC [Suspect]
     Indication: HYPERSENSITIVITY
     Dosage: (DAILY), ORAL
     Route: 048
     Dates: start: 20030101
  2. BENADRYL [Suspect]
     Indication: MULTIPLE ALLERGIES
     Dosage: (QID)
     Dates: start: 20020101
  3. LORATADINE [Suspect]
     Indication: HYPERSENSITIVITY
     Dates: start: 20030101, end: 20030101

REACTIONS (10)
  - ASTHMA [None]
  - BRONCHITIS [None]
  - COUGH [None]
  - EYE OEDEMA [None]
  - EYE REDNESS [None]
  - PNEUMONIA MYCOPLASMAL [None]
  - PRURITUS [None]
  - SEDATION [None]
  - SNEEZING [None]
  - URTICARIA [None]
